FAERS Safety Report 10161073 (Version 1)
Quarter: 2014Q2

REPORT INFORMATION
  Report Type: Spontaneous
  Country: US (occurrence: US)
  Receive Date: 20140508
  Receipt Date: 20140508
  Transmission Date: 20141212
  Serious: No
  Sender: FDA-Public Use
  Company Number: US-PFIZER INC-2014123575

PATIENT
  Age: 75 Year
  Sex: Female
  Weight: 54.42 kg

DRUGS (3)
  1. AZITHROMYCIN [Suspect]
     Indication: BRONCHITIS
     Dosage: 500 MG (BY TAKING 2 TABLETS OF 250MG), 1X/DAY
     Route: 048
     Dates: start: 20131207, end: 20131208
  2. VERAPAMIL [Concomitant]
     Indication: HYPERTENSION
     Dosage: 180 MG, 1X/DAY
  3. LOSARTAN [Concomitant]
     Indication: HYPERTENSION
     Dosage: 100 MG, 1X/DAY

REACTIONS (3)
  - Paraesthesia [Recovered/Resolved]
  - Erythema [Recovered/Resolved]
  - Pruritus [Recovered/Resolved]
